FAERS Safety Report 7247966-2 (Version None)
Quarter: 2011Q1

REPORT INFORMATION
  Report Type: 
  Country: None (occurrence: None)
  Receive Date: 20110127
  Receipt Date: 20110120
  Transmission Date: 20110831
  Serious: No
  Sender: FDA-Public Use
  Company Number: US-BAYER-201036778NA

PATIENT
  Sex: Female

DRUGS (2)
  1. MIRENA [Suspect]
     Indication: CONTRACEPTION
     Dosage: 20 ?G, CONT
     Dates: start: 20100501, end: 20100101
  2. MIRENA [Suspect]
     Dosage: 20 ?G, CONT
     Route: 015
     Dates: start: 20100701

REACTIONS (8)
  - DEVICE EXPULSION [None]
  - ABDOMINAL PAIN [None]
  - NAUSEA [None]
  - ABDOMINAL RIGIDITY [None]
  - ABDOMINAL PAIN UPPER [None]
  - VAGINAL HAEMORRHAGE [None]
  - SUPPRESSED LACTATION [None]
  - ABDOMINAL MASS [None]
